FAERS Safety Report 11114267 (Version 1)
Quarter: 2015Q2

REPORT INFORMATION
  Report Type: Spontaneous
  Country: US (occurrence: US)
  Receive Date: 20150514
  Receipt Date: 20150514
  Transmission Date: 20150821
  Serious: No
  Sender: FDA-Public Use
  Company Number: US-GLAXOSMITHKLINE-US2015GSK037356

PATIENT
  Sex: Male
  Weight: 68.27 kg

DRUGS (11)
  1. FLONASE [Suspect]
     Active Substance: FLUTICASONE PROPIONATE
     Indication: PRODUCT USED FOR UNKNOWN INDICATION
  2. ZOCOR [Concomitant]
     Active Substance: SIMVASTATIN
  3. ATACAND [Concomitant]
     Active Substance: CANDESARTAN CILEXETIL
  4. CARDIZEM [Concomitant]
     Active Substance: DILTIAZEM HYDROCHLORIDE
  5. COREG [Concomitant]
     Active Substance: CARVEDILOL
  6. CLINDAMYCIN [Concomitant]
     Active Substance: CLINDAMYCIN\CLINDAMYCIN PHOSPHATE
  7. PREDNISONE. [Concomitant]
     Active Substance: PREDNISONE
  8. WARFARIN [Concomitant]
     Active Substance: WARFARIN
  9. SYNTHROID [Concomitant]
     Active Substance: LEVOTHYROXINE SODIUM
  10. TUMS [Concomitant]
     Active Substance: CALCIUM CARBONATE
  11. CALCIUM + VITAMIN B COMPLEX [Concomitant]

REACTIONS (2)
  - Mucous membrane disorder [Unknown]
  - Epistaxis [Unknown]
